FAERS Safety Report 10366599 (Version 4)
Quarter: 2014Q3

REPORT INFORMATION
  Report Type: Spontaneous
  Country: US (occurrence: US)
  Receive Date: 20140806
  Receipt Date: 20140916
  Transmission Date: 20150326
  Serious: Yes (Other)
  Sender: FDA-Public Use
  Company Number: PHEH2014US014596

PATIENT
  Age: 50 Year
  Sex: Male
  Weight: 94.79 kg

DRUGS (1)
  1. GILENYA [Suspect]
     Active Substance: FINGOLIMOD HYDROCHLORIDE
     Indication: RELAPSING-REMITTING MULTIPLE SCLEROSIS
     Dosage: 0.5 MG, QD
     Route: 048
     Dates: start: 20140714

REACTIONS (8)
  - Sinus bradycardia [Unknown]
  - Atrioventricular dissociation [Unknown]
  - Electrocardiogram QT shortened [Unknown]
  - Electrocardiogram PR prolongation [Unknown]
  - Electrocardiogram abnormal [Unknown]
  - Electrocardiogram QRS complex prolonged [Unknown]
  - Atrioventricular block second degree [Recovered/Resolved]
  - Atrioventricular block complete [Unknown]

NARRATIVE: CASE EVENT DATE: 20140714
